FAERS Safety Report 4930753-5 (Version None)
Quarter: 2006Q1

REPORT INFORMATION
  Report Type: 
  Country: None (occurrence: None)
  Receive Date: 20060227
  Receipt Date: 20060214
  Transmission Date: 20060701
  Serious: Yes (Other)
  Sender: FDA-Public Use
  Company Number: 2006021520

PATIENT
  Age: 33 Year
  Sex: Male

DRUGS (10)
  1. VIAGRA [Suspect]
     Indication: ERECTILE DYSFUNCTION
     Dosage: 50 MG (50 MG, PRN), ORAL
     Route: 048
     Dates: start: 20060213
  2. LORAZEPAM [Concomitant]
  3. OXYCODONE HCL [Concomitant]
  4. DOXAZOSIN (DOXAZOSIN) [Concomitant]
  5. REMERON [Concomitant]
  6. DICYCLOMINE (DICYCLOVERINE) [Concomitant]
  7. PROTONIX [Concomitant]
  8. DIAZEPAM [Concomitant]
  9. VALIUM [Concomitant]
  10. NEURONTIN [Concomitant]

REACTIONS (4)
  - CONDITION AGGRAVATED [None]
  - FLUSHING [None]
  - HEADACHE [None]
  - TREMOR [None]
